FAERS Safety Report 10102408 (Version 1)
Quarter: 2014Q2

REPORT INFORMATION
  Report Type: Spontaneous
  Country: US (occurrence: US)
  Receive Date: 20140424
  Receipt Date: 20140424
  Transmission Date: 20141212
  Serious: Yes (Hospitalization)
  Sender: FDA-Public Use
  Company Number: US-JNJFOC-20140414837

PATIENT
  Age: 28 Year
  Sex: Male

DRUGS (3)
  1. REMICADE [Suspect]
     Indication: COLITIS ULCERATIVE
     Route: 042
  2. REMICADE [Suspect]
     Indication: COLITIS ULCERATIVE
     Dosage: THIRD DOSE
     Route: 042
     Dates: start: 201404
  3. 5-ASA [Concomitant]
     Route: 065

REACTIONS (3)
  - Haemorrhage [Recovering/Resolving]
  - Drug ineffective [Recovering/Resolving]
  - Pyrexia [Unknown]
